FAERS Safety Report 9885484 (Version 1)
Quarter: 2014Q1

REPORT INFORMATION
  Report Type: Spontaneous
  Country: US (occurrence: US)
  Receive Date: 20140210
  Receipt Date: 20140210
  Transmission Date: 20141002
  Serious: Yes (Disabling)
  Sender: FDA-Public Use
  Company Number: US-SA-2014SA015270

PATIENT
  Sex: Male

DRUGS (5)
  1. LANTUS SOLOSTAR [Suspect]
     Indication: TYPE 2 DIABETES MELLITUS
     Dosage: DOSE:30 UNIT(S)
     Route: 051
  2. HMG COA REDUCTASE INHIBITORS [Suspect]
     Route: 065
  3. HMG COA REDUCTASE INHIBITORS [Suspect]
     Route: 065
  4. SOLOSTAR [Concomitant]
     Indication: TYPE 2 DIABETES MELLITUS
  5. CRESTOR [Concomitant]

REACTIONS (4)
  - Cerebrovascular accident [Unknown]
  - Vocal cord paralysis [Unknown]
  - Hypokinesia [Unknown]
  - Muscle disorder [Unknown]
